FAERS Safety Report 24908523 (Version 1)
Quarter: 2025Q1

REPORT INFORMATION
  Report Type: Report from Study
  Country: US (occurrence: US)
  Receive Date: 20250131
  Receipt Date: 20250131
  Transmission Date: 20250409
  Serious: No
  Sender: ROCHE
  Company Number: US-ROCHE-10000193749

PATIENT
  Age: 46 Year
  Sex: Female

DRUGS (1)
  1. OCREVUS [Suspect]
     Active Substance: OCRELIZUMAB
     Indication: Relapsing multiple sclerosis
     Dosage: INFUSE 300 MG DAY ONE; THEN 300 MG DAY 15?DRUG STILL BEING ADMINISTERED
     Route: 065
     Dates: start: 20190515

REACTIONS (1)
  - COVID-19 [Unknown]
